FAERS Safety Report 13023188 (Version 1)
Quarter: 2016Q4

REPORT INFORMATION
  Report Type: Spontaneous
  Country: US (occurrence: US)
  Receive Date: 20161213
  Receipt Date: 20161213
  Transmission Date: 20170207
  Serious: No
  Sender: FDA-Public Use
  Company Number: US-PFIZER INC-2016565864

PATIENT
  Age: 73 Year
  Sex: Female

DRUGS (2)
  1. DECLOMYCIN [Suspect]
     Active Substance: DEMECLOCYCLINE HYDROCHLORIDE
     Dosage: UNK
  2. ERYTHROMYCIN. [Suspect]
     Active Substance: ERYTHROMYCIN
     Dosage: UNK

REACTIONS (2)
  - Pharyngeal oedema [Unknown]
  - Drug hypersensitivity [Unknown]
